FAERS Safety Report 24617875 (Version 3)
Quarter: 2025Q3

REPORT INFORMATION
  Report Type: Report from Study
  Country: CN (occurrence: CN)
  Receive Date: 20241114
  Receipt Date: 20250803
  Transmission Date: 20251021
  Serious: Yes (Other)
  Sender: ALEXION PHARMACEUTICALS
  Company Number: CN-ASTRAZENECA-202410GLO023076CN

PATIENT
  Age: 9 Year
  Sex: Female

DRUGS (5)
  1. SELUMETINIB [Suspect]
     Active Substance: SELUMETINIB
     Indication: Neurofibromatosis
     Dosage: 20 MILLIGRAM, QD
  2. SELUMETINIB [Suspect]
     Active Substance: SELUMETINIB
     Dosage: 30 MILLIGRAM, QD
     Dates: start: 20240201, end: 20240307
  3. SELUMETINIB [Suspect]
     Active Substance: SELUMETINIB
     Dosage: 25 MILLIGRAM, BID
     Dates: start: 20240308
  4. TRIAMCINOLONE ACETONIDE [Concomitant]
     Active Substance: TRIAMCINOLONE ACETONIDE
     Indication: Adverse event
     Dosage: UNK GRAM, BID
     Dates: start: 20240506
  5. DESONIDE [Concomitant]
     Active Substance: DESONIDE
     Indication: Adverse event
     Dosage: UNK GRAM, BID
     Dates: start: 20240506

REACTIONS (1)
  - Coeliac disease [Recovered/Resolved]

NARRATIVE: CASE EVENT DATE: 20240713
